FAERS Safety Report 8822667 (Version 1)
Quarter: 2012Q4

REPORT INFORMATION
  Report Type: 
  Country: US (occurrence: US)
  Receive Date: 20121003
  Receipt Date: 20121003
  Transmission Date: 20130627
  Serious: No
  Sender: FDA-Public Use
  Company Number: US-PFIZER INC-2012242449

PATIENT
  Age: 18 Year
  Sex: Male
  Weight: 68 kg

DRUGS (2)
  1. ADVIL [Suspect]
     Indication: PYREXIA
     Dosage: 200 mg, 2x/day
     Route: 048
     Dates: start: 20120928
  2. SULFAMETHOXAZOLE W/TRIMETHOPRIM [Concomitant]
     Indication: FUNGAL INFECTION
     Dosage: UNK

REACTIONS (1)
  - Drug ineffective [Not Recovered/Not Resolved]
